FAERS Safety Report 12566564 (Version 1)
Quarter: 2016Q3

REPORT INFORMATION
  Report Type: Spontaneous
  Country: US (occurrence: US)
  Receive Date: 20160718
  Receipt Date: 20160718
  Transmission Date: 20161109
  Serious: No
  Sender: FDA-Public Use
  Company Number: US-MYLANLABS-2016M1014102

PATIENT
  Age: 37 Year
  Sex: Female
  Weight: 74.83 kg

DRUGS (6)
  1. ESTRADIOL TRANSDERMAL SYSTEM [Suspect]
     Active Substance: ESTRADIOL
     Indication: IN VITRO FERTILISATION
     Dosage: 0.1 MG, Q3D
     Route: 062
     Dates: start: 20160308, end: 20160320
  2. SYNTHROID [Concomitant]
     Active Substance: LEVOTHYROXINE SODIUM
     Dosage: UNK ?G, UNK
  3. LUPRON [Concomitant]
     Active Substance: LEUPROLIDE ACETATE
     Dosage: 5 MG, UNK
  4. PRENATAL VITAMINS                  /02014401/ [Concomitant]
     Active Substance: VITAMINS
     Dosage: UNK
  5. ESTRADIOL TRANSDERMAL SYSTEM [Suspect]
     Active Substance: ESTRADIOL
     Indication: OFF LABEL USE
  6. ESTRACE [Concomitant]
     Active Substance: ESTRADIOL
     Dosage: 2 MG, UNK

REACTIONS (1)
  - Blood oestrogen decreased [Not Recovered/Not Resolved]

NARRATIVE: CASE EVENT DATE: 20160330
